FAERS Safety Report 4563697-1 (Version None)
Quarter: 2005Q1

REPORT INFORMATION
  Report Type: 
  Country: None (occurrence: None)
  Receive Date: 20050125
  Receipt Date: 20050112
  Transmission Date: 20050727
  Serious: Yes (Disabling, Other)
  Sender: FDA-Public Use
  Company Number: 2005007763

PATIENT
  Sex: Female

DRUGS (1)
  1. DEPO-PROVERA [Suspect]
     Indication: MENORRHAGIA
     Dosage: 1ST INJECTION, INTRAMUSCULAR LAST INJECTION, INTRAMUSCULAR
     Route: 030
     Dates: start: 19960101, end: 19960101

REACTIONS (15)
  - AMENORRHOEA [None]
  - ANXIETY [None]
  - ARRHYTHMIA [None]
  - ASTHENIA [None]
  - BONE PAIN [None]
  - BREAST PAIN [None]
  - DEPRESSION [None]
  - INTENTIONAL MISUSE [None]
  - LOSS OF EMPLOYMENT [None]
  - MULTIPLE SCLEROSIS [None]
  - PAIN IN EXTREMITY [None]
  - PALPITATIONS [None]
  - PANIC ATTACK [None]
  - SUICIDE ATTEMPT [None]
  - WEIGHT INCREASED [None]
